FAERS Safety Report 7868132-3 (Version None)
Quarter: 2011Q4

REPORT INFORMATION
  Report Type: 
  Country: None (occurrence: None)
  Receive Date: 20111028
  Receipt Date: 20111014
  Transmission Date: 20120403
  Serious: Yes (Other)
  Sender: FDA-Public Use
  Company Number: US-ELI_LILLY_AND_COMPANY-US201110004141

PATIENT
  Age: 14 Year
  Sex: Male

DRUGS (3)
  1. STRATTERA [Suspect]
     Indication: ATTENTION DEFICIT/HYPERACTIVITY DISORDER
     Dosage: 1 DF, UNKNOWN
  2. STRATTERA [Suspect]
     Dosage: 1 DF, UNKNOWN
  3. STRATTERA [Suspect]
     Dosage: 60 MG, UNKNOWN

REACTIONS (1)
  - SUICIDAL IDEATION [None]
